FAERS Safety Report 20224427 (Version 2)
Quarter: 2022Q1

REPORT INFORMATION
  Report Type: Spontaneous
  Country: US (occurrence: US)
  Receive Date: 20211223
  Receipt Date: 20220106
  Transmission Date: 20220424
  Serious: Yes (Death)
  Sender: FDA-Public Use
  Company Number: US-LUNDBECK-DKLU3042615

PATIENT
  Age: 74 Year
  Sex: Male

DRUGS (6)
  1. NORTHERA [Suspect]
     Active Substance: DROXIDOPA
     Indication: Parkinson^s disease
     Route: 048
     Dates: start: 201901
  2. NORTHERA [Suspect]
     Active Substance: DROXIDOPA
     Indication: Ankylosing spondylitis
  3. NORTHERA [Suspect]
     Active Substance: DROXIDOPA
     Indication: Rheumatoid arthritis
  4. NORTHERA [Suspect]
     Active Substance: DROXIDOPA
     Indication: Psoriatic arthropathy
  5. RYTARY [Concomitant]
     Active Substance: CARBIDOPA\LEVODOPA
     Indication: Product used for unknown indication
     Route: 065
  6. NUPLAZID [Concomitant]
     Active Substance: PIMAVANSERIN TARTRATE
     Indication: Product used for unknown indication
     Route: 065

REACTIONS (2)
  - Dementia with Lewy bodies [Fatal]
  - Parkinson^s disease [Fatal]
